FAERS Safety Report 10440036 (Version 1)
Quarter: 2014Q3

REPORT INFORMATION
  Report Type: Spontaneous
  Country: GB (occurrence: None)
  Receive Date: 20140905
  Receipt Date: 20140905
  Transmission Date: 20150326
  Serious: No
  Sender: FDA-Public Use
  Company Number: 2014GR_BP004928

PATIENT
  Age: 21 Year
  Sex: Male

DRUGS (2)
  1. FINASTERIDE (FINASTERIDE) [Suspect]
     Active Substance: FINASTERIDE
     Indication: ANDROGENETIC ALOPECIA
     Route: 048
     Dates: start: 20100101, end: 20100301
  2. FINASTERIDE (FINASTERIDE) [Suspect]
     Active Substance: FINASTERIDE
     Indication: OFF LABEL USE
     Route: 048
     Dates: start: 20100101, end: 20100301

REACTIONS (4)
  - Collagen disorder [None]
  - Fat redistribution [None]
  - Off label use [None]
  - Premature ageing [None]
